FAERS Safety Report 23999549 (Version 2)
Quarter: 2024Q3

REPORT INFORMATION
  Report Type: Spontaneous
  Country: US (occurrence: US)
  Receive Date: 20240621
  Receipt Date: 20240903
  Transmission Date: 20241016
  Serious: Yes (Hospitalization, Disabling)
  Sender: VIFOR
  Company Number: US-Vifor (International) Inc.-VIT-2024-05369

PATIENT
  Sex: Male

DRUGS (1)
  1. VELTASSA [Suspect]
     Active Substance: PATIROMER
     Indication: Product used for unknown indication

REACTIONS (2)
  - Dehydration [Unknown]
  - Diarrhoea [Recovering/Resolving]
